FAERS Safety Report 6785504-9 (Version None)
Quarter: 2010Q2

REPORT INFORMATION
  Report Type: 
  Country: None (occurrence: None)
  Receive Date: 20100621
  Receipt Date: 20100621
  Transmission Date: 20101027
  Serious: Yes (Death, Hospitalization)
  Sender: FDA-Public Use
  Company Number: None

PATIENT
  Age: 73 Year
  Sex: Female
  Weight: 45 kg

DRUGS (11)
  1. COUMADIN [Suspect]
     Indication: CARDIOMYOPATHY
     Dosage: 0.5 MG/ 1 MG TUES/WTHSS PO CHRONIC
     Route: 048
  2. ASPIRIN [Suspect]
     Indication: CARDIOMYOPATHY
     Dosage: 81 MG DAILY PO CHRONIC
     Route: 048
  3. SPIRONOLACTONE [Concomitant]
  4. NORTRIPTYLINE [Concomitant]
  5. HYOSCYAMINE [Concomitant]
  6. FERROUS SULFATE TAB [Concomitant]
  7. PRILOSEC [Concomitant]
  8. PHENERGAN [Concomitant]
  9. AMIODARONE HCL [Concomitant]
  10. HYDROCODONE BITARTRATE AND ACETAMINOPHEN [Concomitant]
  11. FUROSEMIDE [Concomitant]

REACTIONS (7)
  - COAGULOPATHY [None]
  - COMA [None]
  - DRUG INEFFECTIVE [None]
  - FALL [None]
  - HALLUCINATION [None]
  - RENAL FAILURE ACUTE [None]
  - SUBDURAL HAEMATOMA [None]
